FAERS Safety Report 9063360 (Version 1)
Quarter: 2013Q1

REPORT INFORMATION
  Report Type: Report from Study
  Country: US (occurrence: US)
  Receive Date: 20130131
  Receipt Date: 20130131
  Transmission Date: 20140127
  Serious: No
  Sender: FDA-Public Use
  Company Number: US-ABBOTT-12P-163-1013446-00

PATIENT
  Age: 54 Year
  Sex: Female

DRUGS (3)
  1. HUMIRA [Suspect]
     Indication: CROHN^S DISEASE
     Dates: start: 20121009
  2. ENSURE [Suspect]
  3. LISINOPRIL/HCTZ [Concomitant]
     Indication: HYPERTENSION
     Dosage: 20/12.5 MG DAILY

REACTIONS (4)
  - Protein total decreased [Unknown]
  - Oedema peripheral [Recovered/Resolved]
  - Blood potassium decreased [Unknown]
  - Abdominal pain upper [Unknown]
